FAERS Safety Report 5568840-3 (Version None)
Quarter: 2007Q4

REPORT INFORMATION
  Report Type: 
  Country: None (occurrence: None)
  Receive Date: 20071220
  Receipt Date: 20070201
  Transmission Date: 20080405
  Serious: No
  Sender: FDA-Public Use
  Company Number: A0637975A

PATIENT
  Age: 86 Year
  Sex: Male

DRUGS (10)
  1. AVODART [Suspect]
     Indication: BENIGN PROSTATIC HYPERPLASIA
     Dosage: .5MG PER DAY
     Route: 048
     Dates: start: 20061101
  2. COREG [Concomitant]
  3. LANOXIN [Concomitant]
  4. CALCIUM [Concomitant]
  5. LEVOTHYROXINE SODIUM [Concomitant]
  6. LASIX [Concomitant]
  7. COUMADIN [Concomitant]
  8. XANAX [Concomitant]
  9. OXYCODONE HCL [Concomitant]
  10. PROMETHAZINE [Concomitant]

REACTIONS (1)
  - PRURITUS [None]
